FAERS Safety Report 9869399 (Version 2)
Quarter: 2014Q4

REPORT INFORMATION
  Report Type: Spontaneous
  Country: US (occurrence: US)
  Receive Date: 20140205
  Receipt Date: 20141203
  Transmission Date: 20150529
  Serious: Yes (Hospitalization)
  Sender: FDA-Public Use
  Company Number: US-BAYER-2014-016856

PATIENT
  Age: 21 Year
  Sex: Female
  Weight: 61.22 kg

DRUGS (2)
  1. YAZ [Suspect]
     Active Substance: DROSPIRENONE\ETHINYL ESTRADIOL
     Dosage: UNK
     Dates: start: 201005, end: 201101
  2. GIANVI [Suspect]
     Active Substance: DROSPIRENONE\ETHINYL ESTRADIOL
     Dosage: UNK
     Dates: start: 201004

REACTIONS (5)
  - Deep vein thrombosis [None]
  - Dyspnoea [None]
  - Pain [None]
  - Injury [None]
  - Haematoma [None]

NARRATIVE: CASE EVENT DATE: 20110117
